FAERS Safety Report 8079451-2 (Version None)
Quarter: 2012Q1

REPORT INFORMATION
  Report Type: 
  Country: None (occurrence: None)
  Receive Date: 20120128
  Receipt Date: 20110823
  Transmission Date: 20120608
  Serious: No
  Sender: FDA-Public Use
  Company Number: US-ABBOTT-11P-163-0848755-00

PATIENT
  Age: 30 Year
  Sex: Female

DRUGS (7)
  1. HUMIRA [Suspect]
     Dosage: 40MG ONE WEEK THEN 80 MG THE NEXT WEEK
  2. HUMIRA [Suspect]
     Indication: CROHN'S DISEASE
  3. PAXIL [Concomitant]
     Indication: ANXIETY
  4. HUMIRA [Suspect]
     Indication: CROHN'S DISEASE
     Dates: start: 20090101
  5. PENTASA [Concomitant]
     Indication: PRODUCT USED FOR UNKNOWN INDICATION
  6. VITAMIN TAB [Concomitant]
     Indication: PRODUCT USED FOR UNKNOWN INDICATION
     Dosage: DAILY
  7. HUMIRA [Suspect]

REACTIONS (4)
  - INJECTION SITE PAIN [None]
  - DIARRHOEA [None]
  - CLOSTRIDIUM DIFFICILE COLITIS [None]
  - PYREXIA [None]
